FAERS Safety Report 16129290 (Version 1)
Quarter: 2019Q1

REPORT INFORMATION
  Report Type: Spontaneous
  Country: US (occurrence: US)
  Receive Date: 20190328
  Receipt Date: 20190328
  Transmission Date: 20190418
  Serious: No
  Sender: FDA-Public Use
  Company Number: US-TEVA-2019-US-1021289

PATIENT
  Age: 86 Year
  Sex: Female

DRUGS (1)
  1. LORAZEPAM 0.5 MG [Suspect]
     Active Substance: LORAZEPAM
     Route: 065

REACTIONS (3)
  - Anxiety [Unknown]
  - Hot flush [Unknown]
  - Agoraphobia [Unknown]
